FAERS Safety Report 17582095 (Version 1)
Quarter: 2020Q1

REPORT INFORMATION
  Report Type: Spontaneous
  Country: GB (occurrence: GB)
  Receive Date: 20200325
  Receipt Date: 20200325
  Transmission Date: 20200409
  Serious: Yes (Other)
  Sender: FDA-Public Use
  Company Number: GB-PFIZER INC-2020123854

PATIENT
  Age: 38 Year
  Sex: Female
  Weight: 74.83 kg

DRUGS (3)
  1. GABAPENTIN. [Concomitant]
     Active Substance: GABAPENTIN
  2. DULOXETINE. [Suspect]
     Active Substance: DULOXETINE
     Indication: MAJOR DEPRESSION
     Dosage: 60 MG, UNK
     Route: 048
     Dates: start: 20190203
  3. VENLAFAXINE HCL [Suspect]
     Active Substance: VENLAFAXINE HYDROCHLORIDE
     Indication: MAJOR DEPRESSION
     Dosage: 75 MG, UNK
     Route: 048
     Dates: start: 20190206, end: 20190809

REACTIONS (2)
  - Female orgasmic disorder [Unknown]
  - Disturbance in sexual arousal [Recovered/Resolved]

NARRATIVE: CASE EVENT DATE: 20190301
